FAERS Safety Report 18952132 (Version 2)
Quarter: 2021Q2

REPORT INFORMATION
  Report Type: Spontaneous
  Country: US (occurrence: US)
  Receive Date: 20210301
  Receipt Date: 20210525
  Transmission Date: 20210717
  Serious: Yes (Hospitalization, Other)
  Sender: FDA-Public Use
  Company Number: US-SA-2021SA066553

PATIENT
  Sex: Male
  Weight: 55.3 kg

DRUGS (18)
  1. PULMOZYME [Concomitant]
     Active Substance: DORNASE ALFA
     Dosage: UNK
  2. TRIKAFTA [Concomitant]
     Active Substance: ELEXACAFTOR\IVACAFTOR\TEZACAFTOR
     Dosage: UNK
  3. GAS?X [Concomitant]
     Active Substance: DIMETHICONE
     Dosage: UNK
  4. RELIZORB [Concomitant]
     Dosage: UNK
  5. DUPIXENT [Suspect]
     Active Substance: DUPILUMAB
     Indication: ASTHMA
     Dosage: 300 MG, QOW
     Route: 058
     Dates: start: 201908
  6. LEVOFLOXACIN. [Suspect]
     Active Substance: LEVOFLOXACIN
  7. MONTELUKAST [Suspect]
     Active Substance: MONTELUKAST SODIUM
  8. ZENPEP [Concomitant]
     Active Substance: PANCRELIPASE AMYLASE\PANCRELIPASE LIPASE\PANCRELIPASE PROTEASE
     Dosage: UNK
  9. DUPIXENT [Suspect]
     Active Substance: DUPILUMAB
     Indication: CYSTIC FIBROSIS
  10. DULERA [Concomitant]
     Active Substance: FORMOTEROL FUMARATE DIHYDRATE\MOMETASONE FUROATE
     Dosage: UNK
  11. TYLENOL [Concomitant]
     Active Substance: ACETAMINOPHEN
     Dosage: UNK
  12. BETHANECHOL CHLORIDE. [Concomitant]
     Active Substance: BETHANECHOL CHLORIDE
     Dosage: UNK
  13. TUMS [Concomitant]
     Active Substance: CALCIUM CARBONATE
     Dosage: UNK
  14. ATOMOXETINE HCL [Concomitant]
     Active Substance: ATOMOXETINE HYDROCHLORIDE
     Dosage: UNK
  15. QVAR REDIHALER [Concomitant]
     Active Substance: BECLOMETHASONE DIPROPIONATE
     Dosage: UNK
  16. IBUPROFEN [IBUPROFEN SODIUM] [Concomitant]
     Active Substance: IBUPROFEN SODIUM
     Dosage: UNK
  17. BUDESONIDE. [Concomitant]
     Active Substance: BUDESONIDE
     Dosage: UNK
  18. SODIUM CHLORIDE. [Concomitant]
     Active Substance: SODIUM CHLORIDE
     Dosage: UNK

REACTIONS (8)
  - Cystic fibrosis gastrointestinal disease [Recovering/Resolving]
  - Oesophagogastric fundoplasty [Recovering/Resolving]
  - Staphylococcal infection [Recovering/Resolving]
  - Product use issue [Unknown]
  - Depression [Recovering/Resolving]
  - Arthralgia [Recovering/Resolving]
  - Sinus operation [Recovering/Resolving]
  - Product use in unapproved indication [Unknown]

NARRATIVE: CASE EVENT DATE: 201908
